FAERS Safety Report 11487867 (Version 3)
Quarter: 2016Q2

REPORT INFORMATION
  Report Type: Spontaneous
  Country: US (occurrence: US)
  Receive Date: 20150909
  Receipt Date: 20160610
  Transmission Date: 20160815
  Serious: Yes (Other)
  Sender: FDA-Public Use
  Company Number: US-PFIZER INC-2015295739

PATIENT
  Age: 47 Year
  Sex: Male
  Weight: 102.4 kg

DRUGS (2)
  1. VIAGRA [Suspect]
     Active Substance: SILDENAFIL CITRATE
     Indication: ERECTILE DYSFUNCTION
     Dosage: 100 MG, (ONCE A WEEK AND SOMETIMES ONCE A MONTH)
     Route: 048
     Dates: start: 200210
  2. VIAGRA [Suspect]
     Active Substance: SILDENAFIL CITRATE
     Dosage: 100 MG, 1X/DAY (IF HE HAD TO TAKE ONE, TAKES ONE TIME A DAY)
     Route: 048
     Dates: end: 201508

REACTIONS (3)
  - Arthritis [Unknown]
  - Glaucoma [Not Recovered/Not Resolved]
  - Blindness [Not Recovered/Not Resolved]

NARRATIVE: CASE EVENT DATE: 200508
